FAERS Safety Report 16888849 (Version 3)
Quarter: 2019Q4

REPORT INFORMATION
  Report Type: Spontaneous
  Country: PL (occurrence: PL)
  Receive Date: 20191007
  Receipt Date: 20191017
  Transmission Date: 20200122
  Serious: Yes (Hospitalization)
  Sender: FDA-Public Use
  Company Number: PL-JNJFOC-20190939774

PATIENT
  Age: 15 Year
  Sex: Female

DRUGS (1)
  1. PARACETAMOL [Suspect]
     Active Substance: ACETAMINOPHEN
     Indication: PRODUCT USED FOR UNKNOWN INDICATION
     Dosage: TOOK PARACETAMOL ON DAILY BASES FOR THE LAST COUPLE OF WEEKS IN PILLS AND IN POWDER (MADE FROM PILLS
     Route: 065

REACTIONS (8)
  - Hepatotoxicity [Recovered/Resolved]
  - Drug abuse [Unknown]
  - Diarrhoea [Recovered/Resolved]
  - Suicide attempt [Unknown]
  - Blood uric acid increased [Recovered/Resolved]
  - Dehydration [Recovered/Resolved]
  - Ammonia increased [Recovered/Resolved]
  - Blood potassium decreased [Recovered/Resolved]
